FAERS Safety Report 16123944 (Version 1)
Quarter: 2019Q1

REPORT INFORMATION
  Report Type: Spontaneous
  Country: US (occurrence: US)
  Receive Date: 20190327
  Receipt Date: 20190327
  Transmission Date: 20190418
  Serious: Yes (Hospitalization, Other)
  Sender: FDA-Public Use
  Company Number: US-ELI_LILLY_AND_COMPANY-US201903011821

PATIENT
  Sex: Male

DRUGS (1)
  1. HUMULIN 70/30 [Suspect]
     Active Substance: INSULIN HUMAN
     Indication: DIABETES MELLITUS
     Dosage: 35 [IU], BID
     Route: 058
     Dates: start: 201803

REACTIONS (3)
  - Fall [Unknown]
  - Cerebrovascular accident [Recovering/Resolving]
  - Paralysis [Unknown]

NARRATIVE: CASE EVENT DATE: 201809
